FAERS Safety Report 21444988 (Version 3)
Quarter: 2023Q1

REPORT INFORMATION
  Report Type: Report from Study
  Country: US (occurrence: US)
  Receive Date: 20221012
  Receipt Date: 20230220
  Transmission Date: 20230418
  Serious: Yes (Hospitalization, Other)
  Sender: FDA-Public Use
  Company Number: US-NOVARTISPH-NVSC2022US229370

PATIENT
  Sex: Male

DRUGS (2)
  1. ENTRESTO [Suspect]
     Active Substance: SACUBITRIL\VALSARTAN
     Indication: Product used for unknown indication
     Dosage: 1 DOSAGE FORM, BID
     Route: 065
     Dates: start: 2020
  2. ENTRESTO [Suspect]
     Active Substance: SACUBITRIL\VALSARTAN
     Dosage: 1 DOSAGE FORM, BID
     Route: 065

REACTIONS (11)
  - Oedematous kidney [Recovered/Resolved]
  - Osteonecrosis [Not Recovered/Not Resolved]
  - Lumbar vertebral fracture [Unknown]
  - Loss of consciousness [Not Recovered/Not Resolved]
  - Back pain [Recovering/Resolving]
  - Stress [Unknown]
  - Nerve compression [Recovering/Resolving]
  - Musculoskeletal discomfort [Unknown]
  - Musculoskeletal chest pain [Unknown]
  - Fall [Unknown]
  - Blood pressure decreased [Not Recovered/Not Resolved]

NARRATIVE: CASE EVENT DATE: 20220101
